FAERS Safety Report 14712837 (Version 1)
Quarter: 2018Q2

REPORT INFORMATION
  Report Type: Spontaneous
  Country: FR (occurrence: FR)
  Receive Date: 20180404
  Receipt Date: 20180404
  Transmission Date: 20180711
  Serious: No
  Sender: FDA-Public Use
  Company Number: FR-MERCK KGAA-2045069

PATIENT
  Age: 38 Year
  Sex: Female

DRUGS (1)
  1. NOVOTHYROX [Suspect]
     Active Substance: LEVOTHYROXINE SODIUM
     Indication: HYPOTHYROIDISM
     Dates: start: 201703

REACTIONS (28)
  - Fatigue [None]
  - Affective disorder [None]
  - Muscle spasms [None]
  - Anxiety [None]
  - Stress [None]
  - Haemoglobin decreased [Recovering/Resolving]
  - Maternal exposure during pregnancy [None]
  - Migraine [None]
  - Alopecia [None]
  - Red cell distribution width increased [None]
  - Insomnia [None]
  - Nausea [None]
  - Dizziness [None]
  - Anti-thyroid antibody positive [None]
  - Blood thyroid stimulating hormone increased [Recovered/Resolved]
  - Mean cell haemoglobin increased [Not Recovered/Not Resolved]
  - Nervousness [None]
  - Amnesia [None]
  - Dysstasia [None]
  - Red blood cell count decreased [Recovering/Resolving]
  - Haematocrit decreased [Recovering/Resolving]
  - Sleep disorder [None]
  - Blood fibrinogen increased [None]
  - White blood cell count increased [Recovered/Resolved]
  - Disturbance in attention [None]
  - Social problem [None]
  - Depressed mood [None]
  - Loss of personal independence in daily activities [None]

NARRATIVE: CASE EVENT DATE: 2017
